FAERS Safety Report 7151773-9 (Version None)
Quarter: 2010Q4

REPORT INFORMATION
  Report Type: 
  Country: None (occurrence: None)
  Receive Date: 20101124
  Receipt Date: 20101112
  Transmission Date: 20110411
  Serious: Yes (Hospitalization)
  Sender: FDA-Public Use
  Company Number: 2010-2324

PATIENT
  Age: 12 Year
  Sex: Male
  Weight: 28.8 kg

DRUGS (7)
  1. INCRELEX [Suspect]
     Indication: GROWTH RETARDATION
     Dosage: SEE IMAGE
     Route: 058
     Dates: start: 20100303, end: 20100306
  2. INCRELEX [Suspect]
     Indication: INSULIN-LIKE GROWTH FACTOR DECREASED
     Dosage: SEE IMAGE
     Route: 058
     Dates: start: 20100303, end: 20100306
  3. INCRELEX [Suspect]
     Indication: GROWTH RETARDATION
     Dosage: SEE IMAGE
     Route: 058
     Dates: start: 20100306, end: 20100309
  4. INCRELEX [Suspect]
     Indication: INSULIN-LIKE GROWTH FACTOR DECREASED
     Dosage: SEE IMAGE
     Route: 058
     Dates: start: 20100306, end: 20100309
  5. INCRELEX [Suspect]
     Indication: GROWTH RETARDATION
     Dosage: SEE IMAGE
     Route: 058
     Dates: start: 20100309, end: 20100623
  6. INCRELEX [Suspect]
     Indication: INSULIN-LIKE GROWTH FACTOR DECREASED
     Dosage: SEE IMAGE
     Route: 058
     Dates: start: 20100309, end: 20100623
  7. ZYRTEC [Concomitant]

REACTIONS (3)
  - NASAL CONGESTION [None]
  - PARAGANGLION NEOPLASM [None]
  - TREATMENT NONCOMPLIANCE [None]
